FAERS Safety Report 25514949 (Version 1)
Quarter: 2025Q3

REPORT INFORMATION
  Report Type: Spontaneous
  Country: US (occurrence: US)
  Receive Date: 20250703
  Receipt Date: 20250703
  Transmission Date: 20251020
  Serious: No
  Sender: RADIUS PHARM
  Company Number: US-RADIUS HEALTH INC.-US-RADIUS-25047492

PATIENT
  Sex: Female

DRUGS (1)
  1. TYMLOS [Suspect]
     Active Substance: ABALOPARATIDE
     Indication: Senile osteoporosis
     Dosage: 80 MICROGRAM, QD
     Route: 058
     Dates: start: 202401

REACTIONS (6)
  - Pain [Unknown]
  - Bone pain [Unknown]
  - Myalgia [Unknown]
  - Pain in extremity [Unknown]
  - Pain in extremity [Unknown]
  - Uterine pain [Unknown]

NARRATIVE: CASE EVENT DATE: 20240101
